FAERS Safety Report 10439537 (Version 2)
Quarter: 2015Q1

REPORT INFORMATION
  Report Type: Spontaneous
  Country: IT (occurrence: IT)
  Receive Date: 20140908
  Receipt Date: 20150105
  Transmission Date: 20150720
  Serious: Yes (Other)
  Sender: FDA-Public Use
  Company Number: IT-BAYER-2014-130130

PATIENT
  Age: 53 Year
  Sex: Male
  Weight: 93 kg

DRUGS (2)
  1. NEXAVAR [Suspect]
     Active Substance: SORAFENIB
     Indication: RENAL CANCER
     Dosage: DAILY DOSE 600 MG
     Route: 048
     Dates: start: 20140226
  2. NEXAVAR [Suspect]
     Active Substance: SORAFENIB
     Indication: RENAL CANCER
     Dosage: DAILY DOSE 400 MG
     Dates: start: 20140813, end: 20140827

REACTIONS (2)
  - Ejection fraction decreased [Recovering/Resolving]
  - Ventricular remodelling [Recovering/Resolving]

NARRATIVE: CASE EVENT DATE: 20140730
